FAERS Safety Report 17094203 (Version 3)
Quarter: 2020Q2

REPORT INFORMATION
  Report Type: Report from Study
  Country: AR (occurrence: AR)
  Receive Date: 20191129
  Receipt Date: 20200529
  Transmission Date: 20200713
  Serious: Yes (Death, Hospitalization)
  Sender: FDA-Public Use
  Company Number: NVSC2019AR052581

PATIENT
  Age: 43 Year
  Sex: Female

DRUGS (1)
  1. KISQALI [Suspect]
     Active Substance: RIBOCICLIB
     Indication: BREAST CANCER METASTATIC
     Dosage: 600 MG, QD
     Route: 048
     Dates: start: 20191002, end: 201911

REACTIONS (16)
  - Arthralgia [Unknown]
  - Decreased appetite [Fatal]
  - Dysstasia [Fatal]
  - Feeding disorder [Fatal]
  - Fluid intake reduced [Fatal]
  - Gait disturbance [Fatal]
  - Dehydration [Fatal]
  - Disorientation [Fatal]
  - Metastases to central nervous system [Fatal]
  - Speech disorder [Fatal]
  - Hypersomnia [Fatal]
  - Metastases to trachea [Fatal]
  - Pain [Unknown]
  - Dysphagia [Fatal]
  - Metastases to lung [Fatal]
  - Dyspnoea [Fatal]

NARRATIVE: CASE EVENT DATE: 20191118
